FAERS Safety Report 8840456 (Version 1)
Quarter: 2012Q4

REPORT INFORMATION
  Report Type: 
  Country: US (occurrence: US)
  Receive Date: 20121015
  Receipt Date: 20121015
  Transmission Date: 20130627
  Serious: Yes (Other)
  Sender: FDA-Public Use
  Company Number: US-ROCHE-1135563

PATIENT
  Age: 83 Year
  Sex: Female

DRUGS (7)
  1. RITUXAN [Suspect]
     Indication: WALDENSTROM^S MACROGLOBULINAEMIA
  2. RITUXAN [Suspect]
     Indication: OFF LABEL USE
  3. LANOXIN [Concomitant]
     Route: 065
  4. HYZAAR [Concomitant]
     Dosage: 50 / 125
     Route: 065
  5. ALEVE [Concomitant]
  6. IRON [Concomitant]
     Route: 065
  7. BUMEX [Concomitant]
     Route: 065

REACTIONS (2)
  - Haemoglobin decreased [Unknown]
  - Arrhythmia [Unknown]
